FAERS Safety Report 21223490 (Version 1)
Quarter: 2022Q3

REPORT INFORMATION
  Report Type: Spontaneous
  Country: US (occurrence: None)
  Receive Date: 20220817
  Receipt Date: 20220817
  Transmission Date: 20221027
  Serious: Yes (Hospitalization)
  Sender: FDA-Public Use
  Company Number: None

PATIENT
  Age: 32 Year
  Sex: Female
  Weight: 112.5 kg

DRUGS (8)
  1. DOXORUBICIN HYDROCHLORIDE [Suspect]
     Active Substance: DOXORUBICIN HYDROCHLORIDE
     Dates: end: 20220420
  2. CYCLOPHOSPHAMIDE [Suspect]
     Active Substance: CYCLOPHOSPHAMIDE
     Dates: end: 20220722
  3. CYTARABINE [Suspect]
     Active Substance: CYTARABINE
     Dates: end: 20220801
  4. THIOGUANINE ANHYDROUS [Suspect]
     Active Substance: THIOGUANINE ANHYDROUS
     Dates: end: 20220804
  5. METHOTREXATE [Suspect]
     Active Substance: METHOTREXATE
     Dates: end: 20220725
  6. DEXAMETHASONE [Suspect]
     Active Substance: DEXAMETHASONE
     Dates: end: 20220426
  7. RITUXIMAB [Suspect]
     Active Substance: RITUXIMAB
     Dates: end: 20220413
  8. VINCRISTINE SULFATE [Suspect]
     Active Substance: VINCRISTINE SULFATE
     Dates: end: 20220805

REACTIONS (13)
  - Pyrexia [None]
  - Neutropenia [None]
  - Fatigue [None]
  - Decreased appetite [None]
  - Malaise [None]
  - Chills [None]
  - Muscular weakness [None]
  - Dyspnoea exertional [None]
  - Headache [None]
  - Vomiting [None]
  - Haematoma [None]
  - Mouth injury [None]
  - Pancytopenia [None]

NARRATIVE: CASE EVENT DATE: 20220807
